FAERS Safety Report 13154747 (Version 1)
Quarter: 2017Q1

REPORT INFORMATION
  Report Type: Report from Study
  Country: US (occurrence: US)
  Receive Date: 20170126
  Receipt Date: 20170126
  Transmission Date: 20170428
  Serious: No
  Sender: FDA-Public Use
  Company Number: US-AMGEN-USASL2016149182

PATIENT
  Age: 52 Year
  Sex: Female

DRUGS (1)
  1. CARFILZOMIB [Suspect]
     Active Substance: CARFILZOMIB
     Indication: PLASMA CELL MYELOMA
     Dosage: UNK, DAY ONE EIGHT, AND FIFTEEN EVERY TWENTY EIGHT DAYS
     Route: 065

REACTIONS (4)
  - Blood pressure increased [Unknown]
  - Off label use [Unknown]
  - Headache [Unknown]
  - Blood pressure fluctuation [Unknown]
